FAERS Safety Report 5971590-2 (Version None)
Quarter: 2008Q4

REPORT INFORMATION
  Report Type: 
  Country: None (occurrence: None)
  Receive Date: 20081201
  Receipt Date: 20081121
  Transmission Date: 20090506
  Serious: No
  Sender: FDA-Public Use
  Company Number: US-JNJFOC-20081105651

PATIENT
  Sex: Female
  Weight: 86.18 kg

DRUGS (13)
  1. FENTANYL TRANSDERMAL SYSTEM [Suspect]
     Indication: PAIN IN EXTREMITY
     Route: 062
  2. FENTANYL TRANSDERMAL SYSTEM [Suspect]
     Indication: BACK PAIN
     Route: 062
  3. FENTANYL [Suspect]
     Indication: PAIN IN EXTREMITY
     Route: 062
  4. FENTANYL [Suspect]
     Indication: BACK PAIN
     Route: 062
  5. DULOXETINE [Concomitant]
     Indication: FIBROMYALGIA
     Dosage: 60 MG 2 TABLETS
     Route: 048
  6. TOPROL-XL [Concomitant]
     Indication: HYPERTENSION
     Route: 048
  7. NEXIUM [Concomitant]
     Indication: GASTRIC DISORDER
     Dosage: CAPSULE/TABLET
     Route: 048
  8. CELEBREX [Concomitant]
     Indication: ARTHRITIS
     Dosage: CAPSULE/TABLET
     Route: 048
  9. COUMADIN [Concomitant]
     Dosage: TABLETS TAKEN ON TUESDAY AND THURSDAY
     Route: 048
  10. COUMADIN [Concomitant]
     Indication: THROMBOSIS
     Dosage: TABLETS TAKEN ON MONDAY, WEDNESDAY, FRIDAY, SATURDAY AND SUNDAY
     Route: 048
  11. ALLEGRA [Concomitant]
     Indication: MULTIPLE ALLERGIES
     Dosage: TWICE A DAY AS NEEDED
     Route: 048
  12. ALTACE [Concomitant]
     Indication: HYPERTENSION
     Route: 048
  13. DICYCLOMINE [Concomitant]
     Indication: GASTROINTESTINAL DISORDER
     Route: 048

REACTIONS (4)
  - INADEQUATE ANALGESIA [None]
  - NEUROPATHY PERIPHERAL [None]
  - PRODUCT QUALITY ISSUE [None]
  - WRONG TECHNIQUE IN DRUG USAGE PROCESS [None]
